FAERS Safety Report 9516976 (Version 1)
Quarter: 2013Q3

REPORT INFORMATION
  Report Type: Spontaneous
  Country: NZ (occurrence: NZ)
  Receive Date: 20130911
  Receipt Date: 20130911
  Transmission Date: 20140515
  Serious: Yes (Death)
  Sender: FDA-Public Use
  Company Number: NZ-BAXTER-2013BAX034735

PATIENT
  Age: 54 Year
  Sex: Female

DRUGS (3)
  1. DIANEAL 1MMOL CALCIUM IN 2.5% GLUCOSE PERITONEAL DIALYSIS SOLUTION SIN [Suspect]
     Indication: PERITONEAL DIALYSIS
     Route: 033
     Dates: end: 20130901
  2. EXTRANEAL 7.5% W_V ICODEXTRIN DIALYSIS SOLUTION TWIN BAG WITH DRAINAGE [Suspect]
     Indication: PERITONEAL DIALYSIS
     Route: 033
     Dates: end: 20130901
  3. EXTRANEAL 7.5% W_V ICODEXTRIN DIALYSIS SOLUTION TWIN BAG WITH DRAINAGE [Suspect]
     Dates: end: 20130901

REACTIONS (1)
  - Death [Fatal]
